FAERS Safety Report 5492784-9 (Version None)
Quarter: 2007Q4

REPORT INFORMATION
  Report Type: 
  Country: None (occurrence: None)
  Receive Date: 20071023
  Receipt Date: 20071017
  Transmission Date: 20080405
  Serious: Yes (Other)
  Sender: FDA-Public Use
  Company Number: DE-JNJFOC-20071004356

PATIENT
  Age: 50 Year
  Sex: Male

DRUGS (3)
  1. CAELYX [Suspect]
     Indication: MYCOSIS FUNGOIDES
     Dosage: 10-12 CYCLES
     Route: 042
  2. PSORALEN [Concomitant]
     Route: 065
  3. TARGOCID [Concomitant]
     Route: 065

REACTIONS (1)
  - DEMYELINATING POLYNEUROPATHY [None]
